FAERS Safety Report 18194383 (Version 1)
Quarter: 2020Q3

REPORT INFORMATION
  Report Type: Spontaneous
  Country: US (occurrence: US)
  Receive Date: 20200825
  Receipt Date: 20200825
  Transmission Date: 20201103
  Serious: No
  Sender: FDA-Public Use
  Company Number: US-MISSION PHARMACAL COMPANY-2089017

PATIENT
  Age: 14 Year
  Sex: Male

DRUGS (1)
  1. THIOLA EC [Suspect]
     Active Substance: TIOPRONIN
     Indication: CYSTINURIA
     Route: 048
     Dates: start: 20200809

REACTIONS (4)
  - Flatulence [Recovered/Resolved]
  - Product dose omission issue [Recovered/Resolved]
  - Abdominal pain upper [Recovered/Resolved]
  - Eructation [Recovered/Resolved]
